FAERS Safety Report 5316016-7 (Version None)
Quarter: 2007Q2

REPORT INFORMATION
  Report Type: 
  Country: None (occurrence: None)
  Receive Date: 20070503
  Receipt Date: 20070426
  Transmission Date: 20071010
  Serious: Yes (Hospitalization, Other)
  Sender: FDA-Public Use
  Company Number: GB-ROCHE-492780

PATIENT
  Age: 70 Year
  Sex: Female

DRUGS (11)
  1. BONVIVA [Suspect]
     Indication: OSTEOPOROSIS
     Route: 048
     Dates: start: 20070308, end: 20070323
  2. AMITRIPTYLINE HCL [Concomitant]
     Route: 048
     Dates: start: 20050627
  3. LOSARTAN POSTASSIUM [Concomitant]
     Indication: BLOOD PRESSURE
     Route: 048
     Dates: start: 20030609
  4. NICORANDIL [Concomitant]
     Indication: ANGINA PECTORIS
     Route: 048
     Dates: start: 20030609
  5. BISOPROLOL [Concomitant]
     Indication: BLOOD PRESSURE
     Route: 048
     Dates: start: 20021220
  6. CO CODAMOL [Concomitant]
     Indication: PAIN
     Route: 048
     Dates: start: 20010820
  7. SENNA [Concomitant]
     Indication: CONSTIPATION
     Route: 048
     Dates: start: 20000824
  8. ASPIRIN [Concomitant]
     Route: 048
     Dates: start: 19990721
  9. DIDRONEL PMO [Concomitant]
     Indication: OSTEOPOROSIS
     Route: 048
     Dates: start: 19990506, end: 20070308
  10. ATORVASTATIN CALCIUM [Concomitant]
     Indication: BLOOD CHOLESTEROL DECREASED
     Route: 048
     Dates: start: 19990401
  11. FENTANYL [Concomitant]
     Route: 061
     Dates: start: 20070308

REACTIONS (4)
  - CHEST PAIN [None]
  - DYSPHAGIA [None]
  - HYPERSENSITIVITY [None]
  - WEIGHT DECREASED [None]
